FAERS Safety Report 8540880-1 (Version None)
Quarter: 2012Q3

REPORT INFORMATION
  Report Type: 
  Country: None (occurrence: None)
  Receive Date: 20120726
  Receipt Date: 20120723
  Transmission Date: 20120928
  Serious: No
  Sender: FDA-Public Use
  Company Number: US-PFIZER INC-2012177787

PATIENT
  Sex: Female
  Weight: 63.5 kg

DRUGS (2)
  1. LEVOXYL [Suspect]
     Indication: THYROID DISORDER
     Dosage: 0.125 MG, 1X/DAY
     Route: 048
     Dates: start: 20010201
  2. LEVOXYL [Suspect]
     Dosage: UNK
     Route: 048

REACTIONS (1)
  - HYPERSENSITIVITY [None]
